FAERS Safety Report 22057309 (Version 2)
Quarter: 2023Q1

REPORT INFORMATION
  Report Type: Spontaneous
  Country: PL (occurrence: PL)
  Receive Date: 20230303
  Receipt Date: 20230310
  Transmission Date: 20230417
  Serious: Yes (Death, Hospitalization)
  Sender: FDA-Public Use
  Company Number: PL-BoehringerIngelheim-2023-BI-221390

PATIENT
  Sex: Female

DRUGS (3)
  1. EMPAGLIFLOZIN [Suspect]
     Active Substance: EMPAGLIFLOZIN
     Indication: Type 2 diabetes mellitus
  2. PREDNISONE [Suspect]
     Active Substance: PREDNISONE
     Indication: Inflammation
  3. PREDNISONE [Suspect]
     Active Substance: PREDNISONE
     Indication: Multiple allergies

REACTIONS (3)
  - Arteriosclerosis [Fatal]
  - Nephritis [Recovered/Resolved]
  - Fungal infection [Recovered/Resolved]
